FAERS Safety Report 4700343-8 (Version None)
Quarter: 2005Q2

REPORT INFORMATION
  Report Type: 
  Country: None (occurrence: None)
  Receive Date: 20050209
  Receipt Date: 20050209
  Transmission Date: 20051028
  Serious: No
  Sender: FDA-Public Use
  Company Number: None

PATIENT
  Sex: Female

DRUGS (2)
  1. KEPPRA [Suspect]
     Dosage: 500MG ONE AM TWO QHS
  2. TEGRETOL [Suspect]
     Dosage: 200MG ONE BID

REACTIONS (1)
  - CONVULSION [None]
